FAERS Safety Report 8445056-4 (Version None)
Quarter: 2012Q2

REPORT INFORMATION
  Report Type: 
  Country: None (occurrence: None)
  Receive Date: 20120618
  Receipt Date: 20120613
  Transmission Date: 20120825
  Serious: Yes (Hospitalization)
  Sender: FDA-Public Use
  Company Number: US-ACTELION-A-NJ2012-64681

PATIENT

DRUGS (2)
  1. SILDENAFIL [Concomitant]
  2. VENTAVIS [Suspect]
     Indication: PULMONARY ARTERIAL HYPERTENSION
     Dosage: 5 MCG, 6X DAY
     Route: 055
     Dates: start: 20111018

REACTIONS (3)
  - VIRAL LABYRINTHITIS [None]
  - VERTIGO [None]
  - DIZZINESS [None]
